FAERS Safety Report 8988523 (Version 1)
Quarter: 2012Q4

REPORT INFORMATION
  Report Type: Spontaneous
  Country: TR (occurrence: None)
  Receive Date: 20121218
  Receipt Date: 20121218
  Transmission Date: 20130627
  Serious: Yes (Other)
  Sender: FDA-Public Use
  Company Number: TR-ACCORD-015562

PATIENT

DRUGS (2)
  1. TACROLIMUS (TACROLIMUS) [Suspect]
  2. ERTAPENEM [Suspect]
     Dosage: 500.00 MG-1.00/ INTRAVENOUS (NOT TIMES PER 1.0 DAYS OTHERWISE SPECIFIED
     Route: 042

REACTIONS (2)
  - Drug interaction [None]
  - Drug level increased [None]
